FAERS Safety Report 8277033 (Version 2)
Quarter: 2012Q4

REPORT INFORMATION
  Report Type: Report from Study
  Country: FR (occurrence: FR)
  Receive Date: 20111206
  Receipt Date: 20121023
  Transmission Date: 20130627
  Serious: Yes (Hospitalization)
  Sender: FDA-Public Use
  Company Number: PHHO2010FR18306

PATIENT
  Age: 71 Year
  Sex: Male
  Weight: 52 kg

DRUGS (6)
  1. AFINITOR [Suspect]
     Indication: METASTATIC GASTRIC CANCER
     Dosage: 10 mg, QD
     Route: 048
     Dates: start: 20101105, end: 20101122
  2. MUCOMYST [Concomitant]
  3. OMEPRAZOLE [Concomitant]
  4. TRIFLUCAN [Concomitant]
  5. MAALOX [Concomitant]
  6. KARDEGIC [Concomitant]

REACTIONS (8)
  - Oesophagitis [Recovered/Resolved]
  - Dyspepsia [Recovered/Resolved]
  - Decreased appetite [Recovered/Resolved]
  - Vomiting [Recovered/Resolved]
  - Dysphagia [Recovered/Resolved]
  - Malignant neoplasm progression [Not Recovered/Not Resolved]
  - Oropharyngeal candidiasis [Unknown]
  - Stomatitis [Unknown]
